FAERS Safety Report 6074779-X (Version None)
Quarter: 2009Q1

REPORT INFORMATION
  Report Type: 
  Country: None (occurrence: None)
  Receive Date: 20090212
  Receipt Date: 20090203
  Transmission Date: 20090719
  Serious: Yes (Other)
  Sender: FDA-Public Use
  Company Number: GB-WYE-H07535109

PATIENT
  Age: 58 Year
  Sex: Female

DRUGS (6)
  1. EFFEXOR [Suspect]
     Indication: INTENTIONAL SELF-INJURY
     Dosage: 75 MG, FREQUENCY NOT SPECIFIED
  2. EFFEXOR [Interacting]
     Indication: DEPRESSION
  3. RIFAMPICIN [Concomitant]
     Indication: STAPHYLOCOCCAL INFECTION
     Dosage: UNKNOWN
     Route: 042
  4. RIFAMPICIN [Concomitant]
     Dosage: UNKNOWN
     Route: 048
  5. VANCOMYCIN [Concomitant]
     Indication: STAPHYLOCOCCAL INFECTION
     Dosage: UNKNOWN
     Route: 042
  6. LINEZOLID [Interacting]
     Indication: STAPHYLOCOCCAL INFECTION
     Dosage: UNKNOWN
     Route: 048

REACTIONS (3)
  - DRUG INTERACTION [None]
  - NERVOUS SYSTEM DISORDER [None]
  - SEROTONIN SYNDROME [None]
